FAERS Safety Report 6214811-3 (Version None)
Quarter: 2009Q2

REPORT INFORMATION
  Report Type: 
  Country: None (occurrence: None)
  Receive Date: 20090604
  Receipt Date: 20090602
  Transmission Date: 20091009
  Serious: Yes (Death)
  Sender: FDA-Public Use
  Company Number: D0061812A

PATIENT
  Age: 94 Year
  Sex: Female
  Weight: 49.5 kg

DRUGS (3)
  1. AMOCLAV [Suspect]
     Indication: SKIN LESION
     Dosage: 1000MG TWICE PER DAY
     Route: 048
     Dates: start: 20090301, end: 20090330
  2. OXAZEPAM [Concomitant]
     Indication: SLEEP DISORDER
     Dosage: 10MG UNKNOWN
     Route: 048
  3. RAMIPRIL [Concomitant]
     Dosage: 10MG PER DAY
     Route: 048

REACTIONS (1)
  - TOXIC EPIDERMAL NECROLYSIS [None]
